FAERS Safety Report 12201760 (Version 1)
Quarter: 2016Q1

REPORT INFORMATION
  Report Type: Spontaneous
  Country: US (occurrence: US)
  Receive Date: 20160322
  Receipt Date: 20160322
  Transmission Date: 20160526
  Serious: No
  Sender: FDA-Public Use
  Company Number: US-SA-2016SA032975

PATIENT
  Age: 46 Year
  Sex: Male

DRUGS (1)
  1. NASACORT ALLERGY 24HR [Suspect]
     Active Substance: TRIAMCINOLONE ACETONIDE
     Indication: HYPERSENSITIVITY
     Dosage: DOSE:120 SPRAYS, DAILY DOSE: 120 SPRAYS
     Route: 065
     Dates: start: 20160206, end: 20160209

REACTIONS (2)
  - Rash [Unknown]
  - Pruritus [Unknown]
